FAERS Safety Report 17292535 (Version 1)
Quarter: 2020Q1

REPORT INFORMATION
  Report Type: Spontaneous
  Country: US (occurrence: US)
  Receive Date: 20200101
  Receipt Date: 20200101
  Transmission Date: 20200409
  Serious: No
  Sender: FDA-Public Use
  Company Number: None

PATIENT
  Age: 73 Year
  Sex: Female

DRUGS (1)
  1. OCTREOTIDE ACE INJ 1000MCG/ML 5ML [Suspect]
     Active Substance: OCTREOTIDE ACETATE
     Route: 058
     Dates: start: 201911

REACTIONS (2)
  - Product dose omission [None]
  - Product dispensing error [None]

NARRATIVE: CASE EVENT DATE: 20200101
